FAERS Safety Report 18603356 (Version 1)
Quarter: 2020Q4

REPORT INFORMATION
  Report Type: Spontaneous
  Country: CN (occurrence: CN)
  Receive Date: 20201210
  Receipt Date: 20201210
  Transmission Date: 20210114
  Serious: Yes (Other)
  Sender: FDA-Public Use
  Company Number: CN-ROCHE-2729782

PATIENT
  Age: 63 Year
  Sex: Female
  Weight: 47 kg

DRUGS (5)
  1. MABTHERA [Suspect]
     Active Substance: RITUXIMAB
     Indication: CHRONIC LYMPHOCYTIC LEUKAEMIA
     Route: 041
     Dates: start: 20201201
  2. MABTHERA [Suspect]
     Active Substance: RITUXIMAB
     Indication: LYMPHOCYTIC LYMPHOMA
     Route: 041
     Dates: start: 20201202
  3. BENDAMUSTINE [Concomitant]
     Active Substance: BENDAMUSTINE
     Indication: CHRONIC LYMPHOCYTIC LEUKAEMIA
  4. MABTHERA [Suspect]
     Active Substance: RITUXIMAB
     Route: 041
     Dates: start: 20201202
  5. BENDAMUSTINE [Concomitant]
     Active Substance: BENDAMUSTINE
     Indication: LYMPHOCYTIC LYMPHOMA

REACTIONS (7)
  - Decreased appetite [Unknown]
  - Intentional product use issue [Unknown]
  - Vomiting [Recovered/Resolved]
  - Nausea [Recovered/Resolved]
  - Atrial fibrillation [Recovering/Resolving]
  - Off label use [Unknown]
  - Palpitations [Recovered/Resolved]

NARRATIVE: CASE EVENT DATE: 20201203
